FAERS Safety Report 13342495 (Version 1)
Quarter: 2017Q1

REPORT INFORMATION
  Report Type: Spontaneous
  Country: GB (occurrence: GB)
  Receive Date: 20170316
  Receipt Date: 20170316
  Transmission Date: 20170428
  Serious: Yes (Other)
  Sender: FDA-Public Use
  Company Number: GB-PFIZER INC-2017105945

PATIENT
  Sex: Male

DRUGS (2)
  1. NEFAZODONE [Suspect]
     Active Substance: NEFAZODONE
     Dosage: UNK
  2. SERTRALINE HCL [Suspect]
     Active Substance: SERTRALINE HYDROCHLORIDE
     Dosage: UNK
     Dates: start: 1999

REACTIONS (6)
  - Withdrawal syndrome [Recovered/Resolved]
  - Muscle twitching [Recovered/Resolved]
  - Genital hypoaesthesia [Not Recovered/Not Resolved]
  - Formication [Recovered/Resolved]
  - Male sexual dysfunction [Not Recovered/Not Resolved]
  - Loss of libido [Not Recovered/Not Resolved]
